FAERS Safety Report 8085227-2 (Version None)
Quarter: 2012Q1

REPORT INFORMATION
  Report Type: 
  Country: None (occurrence: None)
  Receive Date: 20120128
  Receipt Date: 20110329
  Transmission Date: 20120608
  Serious: No
  Sender: FDA-Public Use
  Company Number: US-ABBOTT-11P-163-0715009-00

PATIENT
  Age: 52 Year
  Sex: Male

DRUGS (2)
  1. LOSARTAN POTASSIUM [Concomitant]
     Indication: HYPERTENSION
  2. HUMIRA [Suspect]
     Indication: PSORIASIS
     Dates: start: 20110317

REACTIONS (1)
  - HEADACHE [None]
